FAERS Safety Report 19810763 (Version 1)
Quarter: 2021Q3

REPORT INFORMATION
  Report Type: Spontaneous
  Country: CA (occurrence: CA)
  Receive Date: 20210909
  Receipt Date: 20210909
  Transmission Date: 20211014
  Serious: Yes (Other)
  Sender: FDA-Public Use
  Company Number: CA-TEVA-2021-CA-1949154

PATIENT
  Age: 56 Year
  Sex: Female

DRUGS (3)
  1. INDOMETACIN SODIUM [Concomitant]
     Active Substance: INDOMETHACIN SODIUM
  2. CYCLOPENTHIAZIDE [Concomitant]
     Active Substance: CYCLOPENTHIAZIDE
     Indication: HYPERTENSION
  3. PROPRANOLOL HYDROCHLORIDE. [Suspect]
     Active Substance: PROPRANOLOL HYDROCHLORIDE
     Indication: PRODUCT USED FOR UNKNOWN INDICATION
     Dosage: 240 MILLIGRAM DAILY;
     Route: 065

REACTIONS (2)
  - Eosinophilia [Recovered/Resolved]
  - Hypersensitivity pneumonitis [Recovered/Resolved]
